FAERS Safety Report 8983111 (Version 2)
Quarter: 2012Q4

REPORT INFORMATION
  Report Type: 
  Country: GH (occurrence: GH)
  Receive Date: 20121224
  Receipt Date: 20121227
  Transmission Date: 20130627
  Serious: Yes (Other)
  Sender: FDA-Public Use
  Company Number: PHHY2012GH118612

PATIENT
  Sex: Female

DRUGS (1)
  1. GLIVEC [Suspect]
     Indication: CHRONIC MYELOID LEUKAEMIA
     Dosage: 400 mg, UNK
     Dates: start: 20100428

REACTIONS (2)
  - Leukostasis [Unknown]
  - Blast crisis in myelogenous leukaemia [Unknown]
